FAERS Safety Report 17412776 (Version 1)
Quarter: 2020Q1

REPORT INFORMATION
  Report Type: Spontaneous
  Country: CZ (occurrence: CZ)
  Receive Date: 20200213
  Receipt Date: 20200213
  Transmission Date: 20200409
  Serious: Yes (Hospitalization, Other)
  Sender: FDA-Public Use
  Company Number: CZ-VELOXIS PHARMACEUTICALS-2020VELCZ-000085

PATIENT
  Age: 26 Year
  Sex: Female

DRUGS (1)
  1. ENVARSUS XR [Suspect]
     Active Substance: TACROLIMUS
     Indication: IMMUNOSUPPRESSANT DRUG THERAPY
     Dosage: UNK
     Route: 065

REACTIONS (8)
  - Peritonitis [Recovered/Resolved]
  - Appendicitis perforated [Recovered/Resolved]
  - Clostridium difficile colitis [Unknown]
  - Drug level increased [Recovered/Resolved]
  - Leukopenia [Unknown]
  - Solid organ transplant rejection [Unknown]
  - Diarrhoea [Not Recovered/Not Resolved]
  - Off label use [Unknown]
